FAERS Safety Report 6107048-X (Version None)
Quarter: 2009Q1

REPORT INFORMATION
  Report Type: 
  Country: None (occurrence: None)
  Receive Date: 20090305
  Receipt Date: 20090305
  Transmission Date: 20090719
  Serious: Yes (Hospitalization)
  Sender: FDA-Public Use
  Company Number: None

PATIENT
  Age: 69 Year
  Sex: Female
  Weight: 45.3597 kg

DRUGS (1)
  1. METOCLOPRAMIDE [Suspect]
     Indication: GASTRIC ULCER
     Dosage: 1 4@DAY MOUTH
     Route: 048
     Dates: start: 20081004

REACTIONS (4)
  - ABASIA [None]
  - DISTURBANCE IN ATTENTION [None]
  - SPEECH DISORDER [None]
  - TREMOR [None]
